FAERS Safety Report 7156831-0 (Version None)
Quarter: 2010Q4

REPORT INFORMATION
  Report Type: 
  Country: None (occurrence: None)
  Receive Date: 20101214
  Receipt Date: 20101129
  Transmission Date: 20110411
  Serious: Yes (Other)
  Sender: FDA-Public Use
  Company Number: PHHY2010JP78355

PATIENT
  Age: 35 Year
  Sex: Female

DRUGS (5)
  1. CYCLOSPORINE [Suspect]
     Indication: STEM CELL TRANSPLANT
     Dosage: UNK
  2. CYCLOSPORINE [Suspect]
     Indication: IMMUNOSUPPRESSION
  3. CYCLOSPORINE [Suspect]
     Indication: OBLITERATIVE BRONCHIOLITIS
  4. PREDNISOLONE [Concomitant]
     Indication: OBLITERATIVE BRONCHIOLITIS
     Dosage: UNK
  5. ADRENAL HORMONE PREPARATIONS [Concomitant]
     Dosage: UNK

REACTIONS (2)
  - PNEUMOMEDIASTINUM [None]
  - SUBCUTANEOUS EMPHYSEMA [None]
